FAERS Safety Report 11570416 (Version 1)
Quarter: 2015Q3

REPORT INFORMATION
  Report Type: Spontaneous
  Country: US (occurrence: US)
  Receive Date: 20150916
  Receipt Date: 20150916
  Transmission Date: 20151125
  Serious: No
  Sender: FDA-Public Use
  Company Number: US-ELI_LILLY_AND_COMPANY-US200909001628

PATIENT
  Sex: Female

DRUGS (2)
  1. NEURONTIN [Concomitant]
     Active Substance: GABAPENTIN
  2. FORTEO [Suspect]
     Active Substance: TERIPARATIDE
     Indication: OSTEOPOROSIS
     Dosage: UNK, UNK
     Dates: start: 2009

REACTIONS (4)
  - Malaise [Not Recovered/Not Resolved]
  - Gait disturbance [Not Recovered/Not Resolved]
  - Pain [Not Recovered/Not Resolved]
  - Injury [Not Recovered/Not Resolved]

NARRATIVE: CASE EVENT DATE: 2009
